FAERS Safety Report 13296805 (Version 1)
Quarter: 2017Q1

REPORT INFORMATION
  Report Type: Spontaneous
  Country: CA (occurrence: CA)
  Receive Date: 20170306
  Receipt Date: 20170306
  Transmission Date: 20170428
  Serious: Yes (Other)
  Sender: FDA-Public Use
  Company Number: CA-TEVA-746442ACC

PATIENT
  Age: 62 Year
  Sex: Female

DRUGS (11)
  1. TEVA-SPIRONOLACTONE [Suspect]
     Active Substance: SPIRONOLACTONE
     Indication: OEDEMA
     Dosage: 50 MILLIGRAM DAILY;
     Route: 048
  2. TEARS NATURALE II [Concomitant]
  3. GENTEAL MODERATE TO SEVERE GEL DROPS [Concomitant]
     Active Substance: CARBOXYMETHYLCELLULOSE SODIUM\HYPROMELLOSES
  4. IRBESARTAN. [Concomitant]
     Active Substance: IRBESARTAN
  5. OMEPRAZOLE. [Concomitant]
     Active Substance: OMEPRAZOLE
  6. VALACYCLOVIR [Concomitant]
     Active Substance: VALACYCLOVIR HYDROCHLORIDE
  7. ATROVENT HFA [Concomitant]
     Active Substance: IPRATROPIUM BROMIDE
  8. MYLAN-BECLO AQ [Concomitant]
  9. CITALOPRAM [Concomitant]
     Active Substance: CITALOPRAM HYDROBROMIDE
  10. NOVO-PROFEN [Concomitant]
  11. TYLENOL 3 (ACETAMINOPHEN/CODEINE) [Concomitant]

REACTIONS (2)
  - Thrombocytopenia [Recovering/Resolving]
  - Contusion [Recovering/Resolving]
